FAERS Safety Report 6862132-8 (Version None)
Quarter: 2010Q3

REPORT INFORMATION
  Report Type: 
  Country: None (occurrence: None)
  Receive Date: 20100721
  Receipt Date: 20100708
  Transmission Date: 20110219
  Serious: Yes (Other)
  Sender: FDA-Public Use
  Company Number: PHEH2010US01283

PATIENT
  Sex: Male

DRUGS (1)
  1. GLEEVEC [Suspect]
     Indication: CHRONIC MYELOID LEUKAEMIA
     Dosage: 400 MG, QD (DAILY)
     Route: 048
     Dates: start: 20080107

REACTIONS (4)
  - FATIGUE [None]
  - HEPATOMEGALY [None]
  - PROSTATIC SPECIFIC ANTIGEN INCREASED [None]
  - WEIGHT INCREASED [None]
